FAERS Safety Report 21758444 (Version 1)
Quarter: 2022Q4

REPORT INFORMATION
  Report Type: Spontaneous
  Country: US (occurrence: None)
  Receive Date: 20221221
  Receipt Date: 20221221
  Transmission Date: 20230112
  Serious: No
  Sender: FDA-Public Use
  Company Number: US-ROCHE-2972508

PATIENT

DRUGS (2)
  1. GAZYVA [Suspect]
     Active Substance: OBINUTUZUMAB
     Indication: Product used for unknown indication
     Dosage: DAY ONE ;ONGOING: NO
     Route: 042
     Dates: start: 20211124
  2. GAZYVA [Suspect]
     Active Substance: OBINUTUZUMAB
     Dosage: ORDERED TO BE GIVEN ON DAY TWO BUT WAS GIVEN ON DAY 3 ;ONGOING: UNKNOWN
     Route: 042
     Dates: start: 20211126

REACTIONS (3)
  - Off label use [Unknown]
  - Intentional product use issue [Unknown]
  - No adverse event [Unknown]

NARRATIVE: CASE EVENT DATE: 20211126
